FAERS Safety Report 20887380 (Version 1)
Quarter: 2022Q2

REPORT INFORMATION
  Report Type: Spontaneous
  Country: CN (occurrence: CN)
  Receive Date: 20220528
  Receipt Date: 20220528
  Transmission Date: 20220721
  Serious: Yes (Other)
  Sender: FDA-Public Use
  Company Number: None

PATIENT
  Age: 57 Year
  Sex: Female
  Weight: 64 kg

DRUGS (8)
  1. CYCLOPHOSPHAMIDE [Suspect]
     Active Substance: CYCLOPHOSPHAMIDE
     Indication: Breast cancer female
     Dosage: QD (1-2ND CYCLE OF CHEMOTHERAPY)
     Route: 041
  2. CYCLOPHOSPHAMIDE [Suspect]
     Active Substance: CYCLOPHOSPHAMIDE
     Dosage: 0.85 G, QD (THIRD CYCLE OF CHEMOTHERAPY; DOSAGE FORM: POWDER INJECTION)
     Route: 041
     Dates: start: 20220413, end: 20220413
  3. PIRARUBICIN HYDROCHLORIDE [Suspect]
     Active Substance: PIRARUBICIN HYDROCHLORIDE
     Indication: Breast cancer female
     Dosage: QD (1-2ND CYCLE OF CHEMOTHERAPY)
     Route: 041
  4. PIRARUBICIN HYDROCHLORIDE [Suspect]
     Active Substance: PIRARUBICIN HYDROCHLORIDE
     Dosage: 75 MG, QD (THIRD CYCLE OF CHEMOTHERAPY; DOSAGE FORM: LYOPHILIZED POWDER)
     Route: 041
     Dates: start: 20220413, end: 20220413
  5. SODIUM CHLORIDE [Suspect]
     Active Substance: SODIUM CHLORIDE
     Indication: Medication dilution
     Dosage: QD (1-2ND CYCLE OF CHEMOTHERAPY)
     Route: 041
  6. SODIUM CHLORIDE [Suspect]
     Active Substance: SODIUM CHLORIDE
     Dosage: 50 ML, QD (THIRD CYCLE OF CHEMOTHERAPY)
     Route: 041
     Dates: start: 20220413, end: 20220413
  7. DEXTROSE [Suspect]
     Active Substance: DEXTROSE
     Indication: Medication dilution
     Dosage: QD (1-2ND CYCLE OF CHEMOTHERAPY)
     Route: 041
  8. DEXTROSE [Suspect]
     Active Substance: DEXTROSE
     Dosage: 50 ML, QD (THIRD CYCLE OF CHEMOTHERAPY)
     Route: 041
     Dates: start: 20220413, end: 20220413

REACTIONS (5)
  - Decreased appetite [Recovering/Resolving]
  - Chest discomfort [Recovering/Resolving]
  - Discomfort [Recovering/Resolving]
  - Nausea [Recovering/Resolving]
  - Dizziness [Recovering/Resolving]

NARRATIVE: CASE EVENT DATE: 20220414
